FAERS Safety Report 16445198 (Version 2)
Quarter: 2019Q2

REPORT INFORMATION
  Report Type: Spontaneous
  Country: CA (occurrence: CA)
  Receive Date: 20190618
  Receipt Date: 20190620
  Transmission Date: 20190711
  Serious: Yes (Other)
  Sender: FDA-Public Use
  Company Number: CA-PFIZER INC-2019253131

PATIENT
  Age: 29 Year
  Sex: Male

DRUGS (7)
  1. 5-ASA [Suspect]
     Active Substance: MESALAMINE
     Dosage: UNK
     Dates: start: 198910
  2. PREDNISONE. [Concomitant]
     Active Substance: PREDNISONE
     Dosage: 20 MG, GRADUALLY BEEN TAPERED OVER 3 WEEKS
     Route: 048
     Dates: start: 198905
  3. SULFASALAZINE. [Suspect]
     Active Substance: SULFASALAZINE
     Dosage: UNK
     Route: 048
     Dates: start: 1989, end: 198910
  4. PREDNISONE. [Concomitant]
     Active Substance: PREDNISONE
     Indication: COLITIS ULCERATIVE
     Dosage: 20 MG, DAILY
     Route: 048
     Dates: start: 1983, end: 198905
  5. BETAMETHASONE. [Concomitant]
     Active Substance: BETAMETHASONE
     Dosage: 5 MG, 1X/DAY (AT BED TIME)
     Dates: start: 198908, end: 198910
  6. SULFASALAZINE. [Suspect]
     Active Substance: SULFASALAZINE
     Indication: COLITIS ULCERATIVE
     Dosage: 4 G, DAILY
     Route: 048
     Dates: start: 1983, end: 198905
  7. 5-ASA [Suspect]
     Active Substance: MESALAMINE
     Indication: COLITIS ULCERATIVE
     Dosage: 2.4 G, DAILY
     Dates: start: 198905, end: 1989

REACTIONS (2)
  - Nephritis [Recovered/Resolved]
  - Renal impairment [Recovered/Resolved]

NARRATIVE: CASE EVENT DATE: 198911
